FAERS Safety Report 9314254 (Version 1)
Quarter: 2013Q2

REPORT INFORMATION
  Report Type: Spontaneous
  Country: GB (occurrence: None)
  Receive Date: 20130522
  Receipt Date: 20130522
  Transmission Date: 20140414
  Serious: Yes (Other)
  Sender: FDA-Public Use
  Company Number: AUR-APL-2013-03994

PATIENT
  Sex: 0

DRUGS (13)
  1. CITALOPRAM (CITALOPRAM) [Suspect]
     Indication: PRODUCT USED FOR UNKNOWN INDICATION
     Route: 048
  2. LANSOPRAZOLE (LANSOPRAZOLE) [Suspect]
     Indication: PRODUCT USED FOR UNKNOWN INDICATION
  3. ASPIRIN (ACETYLSALICYLIC ACID) [Concomitant]
  4. BISACODYL (BISACODYL) [Concomitant]
  5. CETIRIZINE (CETRIZINE) [Concomitant]
  6. DOXAZOSIN (DOXAZOSIN) [Concomitant]
  7. MEBEVERINE (MEBEVERINE) [Concomitant]
  8. MINOCYCLINE (MINOCYCLINE) [Concomitant]
  9. MOVICOL [Concomitant]
  10. MYCOPHENOLATE MOFETIL (MYCOPHENOLATE MOFETIL) [Concomitant]
  11. PEPPERMINT OIL (MENTA X PIPERTA OIL) [Concomitant]
  12. PREDNISOLONE (PREDNISOONE) [Concomitant]
  13. SALBUTAMOL (SALBUTAMOL) [Concomitant]

REACTIONS (2)
  - Gynaecomastia [None]
  - Hyperprolactinaemia [None]
